FAERS Safety Report 23217795 (Version 1)
Quarter: 2023Q4

REPORT INFORMATION
  Report Type: Spontaneous
  Country: PT (occurrence: PT)
  Receive Date: 20231122
  Receipt Date: 20231122
  Transmission Date: 20240110
  Serious: Yes (Life-Threatening)
  Sender: FDA-Public Use
  Company Number: None

PATIENT

DRUGS (1)
  1. CEFTRIAXONE [Suspect]
     Active Substance: CEFTRIAXONE\CEFTRIAXONE SODIUM
     Indication: Mastoiditis
     Dosage: UNKNOWN
     Route: 042
     Dates: start: 20191031, end: 20191031

REACTIONS (2)
  - Localised oedema [Recovered/Resolved]
  - Tongue oedema [Recovered/Resolved]

NARRATIVE: CASE EVENT DATE: 20191031
